FAERS Safety Report 7937308-9 (Version None)
Quarter: 2011Q4

REPORT INFORMATION
  Report Type: 
  Country: None (occurrence: None)
  Receive Date: 20111123
  Receipt Date: 20111115
  Transmission Date: 20120403
  Serious: Yes (Hospitalization)
  Sender: FDA-Public Use
  Company Number: IT-UCBSA-045858

PATIENT
  Age: 75 Year
  Sex: Male

DRUGS (1)
  1. KEPPRA [Suspect]
     Indication: PARTIAL SEIZURES
     Dosage: DAILY DOSE: 2000 MG. 1000 MG, 30 FILM COATED TABLETS
     Route: 048
     Dates: start: 20090701, end: 20100701

REACTIONS (1)
  - INTERSTITIAL LUNG DISEASE [None]
